FAERS Safety Report 8504685-X (Version None)
Quarter: 2012Q3

REPORT INFORMATION
  Report Type: 
  Country: None (occurrence: None)
  Receive Date: 20120711
  Receipt Date: 20120626
  Transmission Date: 20120928
  Serious: Yes (Hospitalization, Other)
  Sender: FDA-Public Use
  Company Number: DE-ROCHE-1066684

PATIENT
  Sex: Female

DRUGS (5)
  1. ISOPTO DEX [Concomitant]
  2. IDARUBICIN HCL [Suspect]
     Indication: PRODUCT USED FOR UNKNOWN INDICATION
     Route: 042
  3. CYTARABINE [Interacting]
     Indication: PRODUCT USED FOR UNKNOWN INDICATION
     Dates: start: 20120101
  4. ZOFRAN [Concomitant]
     Indication: NAUSEA
     Route: 048
  5. VESANOID [Interacting]
     Indication: ACUTE PROMYELOCYTIC LEUKAEMIA
     Dosage: DOSE 20 ED
     Route: 048
     Dates: start: 20120101, end: 20120101

REACTIONS (2)
  - PULMONARY FIBROSIS [None]
  - DRUG INTERACTION [None]
